FAERS Safety Report 8940991 (Version 1)
Quarter: 2012Q4

REPORT INFORMATION
  Report Type: 
  Country: US (occurrence: US)
  Receive Date: 20121203
  Receipt Date: 20121203
  Transmission Date: 20130627
  Serious: No
  Sender: FDA-Public Use
  Company Number: US-009507513-1211USA010738

PATIENT
  Age: 43 Year
  Sex: Male

DRUGS (2)
  1. PROPECIA [Suspect]
     Indication: ALOPECIA
     Dosage: UNK
     Route: 048
     Dates: start: 1999, end: 2003
  2. PROPECIA [Suspect]
     Dosage: UNK
     Route: 048
     Dates: start: 2012

REACTIONS (2)
  - Cognitive disorder [Unknown]
  - Sexual dysfunction [Unknown]
